FAERS Safety Report 15245262 (Version 1)
Quarter: 2018Q3

REPORT INFORMATION
  Report Type: Spontaneous
  Country: US (occurrence: US)
  Receive Date: 20180713
  Receipt Date: 20180713
  Transmission Date: 20181010
  Serious: Yes (Other)
  Sender: FDA-Public Use
  Company Number: None

PATIENT
  Age: 73 Year
  Sex: Female
  Weight: 61.69 kg

DRUGS (12)
  1. LIPITOR [Concomitant]
     Active Substance: ATORVASTATIN CALCIUM
  2. ASPIRIN. [Concomitant]
     Active Substance: ASPIRIN
  3. KETOCONAZOLE CREAM 2% 60GM [Suspect]
     Active Substance: KETOCONAZOLE
     Indication: RASH
     Route: 061
     Dates: start: 20180521
  4. DICYCLOMINE [Concomitant]
     Active Substance: DICYCLOMINE HYDROCHLORIDE
  5. LORAZEPAM. [Concomitant]
     Active Substance: LORAZEPAM
  6. GLUCOSAMINE CHONDROITIN [Concomitant]
     Active Substance: CHONDROITIN SULFATE (BOVINE)\GLUCOSAMINE HYDROCHLORIDE
  7. LISINOPRIL. [Concomitant]
     Active Substance: LISINOPRIL
  8. CREON [Concomitant]
     Active Substance: PANCRELIPASE AMYLASE\PANCRELIPASE LIPASE\PANCRELIPASE PROTEASE
  9. VERAPAMIL [Concomitant]
     Active Substance: VERAPAMIL HYDROCHLORIDE
  10. TRAMADOL. [Concomitant]
     Active Substance: TRAMADOL
  11. NEXIUM [Concomitant]
     Active Substance: ESOMEPRAZOLE MAGNESIUM
  12. MULTI VITAMIN [Concomitant]
     Active Substance: VITAMINS

REACTIONS (4)
  - Application site swelling [None]
  - Application site erythema [None]
  - Application site pruritus [None]
  - Application site burn [None]

NARRATIVE: CASE EVENT DATE: 20180521
